FAERS Safety Report 25129805 (Version 1)
Quarter: 2025Q1

REPORT INFORMATION
  Report Type: Spontaneous
  Country: CA (occurrence: CA)
  Receive Date: 20250327
  Receipt Date: 20250327
  Transmission Date: 20250408
  Serious: Yes (Hospitalization)
  Sender: PHARMACOSMOS A/S
  Company Number: None

PATIENT
  Age: 42 Year
  Sex: Female
  Weight: 46 kg

DRUGS (2)
  1. MONOFERRIC [Suspect]
     Active Substance: FERRIC DERISOMALTOSE
     Indication: Anaemia
  2. OCTREOTIDE [Concomitant]
     Active Substance: OCTREOTIDE

REACTIONS (1)
  - Haemoglobin decreased [Recovered/Resolved]
